FAERS Safety Report 9802917 (Version 1)
Quarter: 2014Q1

REPORT INFORMATION
  Report Type: Spontaneous
  Country: CA (occurrence: None)
  Receive Date: 20140102
  Receipt Date: 20140102
  Transmission Date: 20141002
  Serious: Yes (Other)
  Sender: FDA-Public Use
  Company Number: AMAG201300233

PATIENT
  Sex: Male

DRUGS (1)
  1. FERAHEME [Suspect]
     Dosage: SINGLE
     Dates: start: 20131011, end: 20131011

REACTIONS (1)
  - Throat tightness [None]
